FAERS Safety Report 13151421 (Version 2)
Quarter: 2018Q1

REPORT INFORMATION
  Report Type: Spontaneous
  Country: US (occurrence: US)
  Receive Date: 20170125
  Receipt Date: 20180201
  Transmission Date: 20180508
  Serious: No
  Sender: FDA-Public Use
  Company Number: US-KADMON PHARMACEUTICALS, LLC-KAD201603-000770

PATIENT
  Sex: Female

DRUGS (4)
  1. RIBAVIRIN. [Suspect]
     Active Substance: RIBAVIRIN
     Indication: HEPATITIS C
     Dosage: TABLET
     Route: 048
     Dates: start: 2006
  2. PEGYLATED INTERFERON ALPHA NOS [Suspect]
     Active Substance: PEGINTERFERON ALFA-2A OR PEGINTERFERON ALFA-2B
     Indication: HEPATITIS C
     Dates: start: 2006
  3. PEGYLATED INTERFERON ALPHA NOS [Suspect]
     Active Substance: PEGINTERFERON ALFA-2A OR PEGINTERFERON ALFA-2B
     Dates: start: 2007
  4. RIBAVIRIN. [Suspect]
     Active Substance: RIBAVIRIN
     Dosage: TABLET
     Route: 048
     Dates: start: 2007

REACTIONS (7)
  - Hepatitis C [Unknown]
  - Benign pancreatic neoplasm [Unknown]
  - Injection site pain [Unknown]
  - Hepatic fibrosis [Unknown]
  - Blood disorder [Unknown]
  - Treatment failure [Unknown]
  - Abdominal discomfort [Unknown]
